FAERS Safety Report 10223726 (Version 1)
Quarter: 2014Q2

REPORT INFORMATION
  Report Type: Spontaneous
  Country: IN (occurrence: IN)
  Receive Date: 20140609
  Receipt Date: 20140609
  Transmission Date: 20141212
  Serious: Yes (Hospitalization)
  Sender: FDA-Public Use
  Company Number: IN-US-EMD SERONO, INC.-7297315

PATIENT
  Age: 53 Year
  Sex: Male

DRUGS (2)
  1. REBIF [Suspect]
     Indication: RELAPSING-REMITTING MULTIPLE SCLEROSIS
     Route: 058
     Dates: start: 2004
  2. REBIF [Suspect]
     Route: 058
     Dates: start: 201402, end: 20140508

REACTIONS (2)
  - Weight decreased [Unknown]
  - Fatigue [Unknown]
